FAERS Safety Report 13497022 (Version 1)
Quarter: 2017Q2

REPORT INFORMATION
  Report Type: Spontaneous
  Country: FR (occurrence: FR)
  Receive Date: 20170428
  Receipt Date: 20170428
  Transmission Date: 20170830
  Serious: Yes (Congenital Anomaly, Other)
  Sender: FDA-Public Use
  Company Number: FR-ABBVIE-17P-056-1957883-00

PATIENT
  Sex: Male

DRUGS (1)
  1. DEPAKINE CHRONO [Suspect]
     Active Substance: VALPROATE SODIUM
     Indication: MATERNAL EXPOSURE TIMING UNSPECIFIED
     Route: 064

REACTIONS (10)
  - Disturbance in attention [Unknown]
  - Dyspraxia [Unknown]
  - Disturbance in attention [Unknown]
  - Speech disorder developmental [Unknown]
  - Affective disorder [Unknown]
  - Ill-defined disorder [Unknown]
  - Foetal distress syndrome [Unknown]
  - Dyslexia [Unknown]
  - Learning disorder [Unknown]
  - Foetal exposure during pregnancy [Unknown]

NARRATIVE: CASE EVENT DATE: 20050323
